FAERS Safety Report 4542174-8 (Version None)
Quarter: 2004Q4

REPORT INFORMATION
  Report Type: 
  Country: None (occurrence: None)
  Receive Date: 20041227
  Receipt Date: 20041216
  Transmission Date: 20050328
  Serious: Yes (Hospitalization, Other)
  Sender: FDA-Public Use
  Company Number: 2003-05-0239

PATIENT
  Age: 28 Year
  Sex: Female
  Weight: 62.5964 kg

DRUGS (3)
  1. ALBUTEROL [Suspect]
     Dosage: 2 PUFFS PRN ORAL AER INH
     Route: 055
     Dates: end: 20000301
  2. PAXIL [Concomitant]
  3. ALLEGRA [Concomitant]

REACTIONS (8)
  - ALLERGY TO ANIMAL [None]
  - DRUG INEFFECTIVE [None]
  - DYSPNOEA [None]
  - OXYGEN SATURATION DECREASED [None]
  - RESPIRATORY DISTRESS [None]
  - STRIDOR [None]
  - TACHYCARDIA [None]
  - WHEEZING [None]
